FAERS Safety Report 7436626-0 (Version None)
Quarter: 2011Q1

REPORT INFORMATION
  Report Type: 
  Country: None (occurrence: None)
  Receive Date: 20110302
  Receipt Date: 20110105
  Transmission Date: 20110831
  Serious: No
  Sender: FDA-Public Use
  Company Number: 022028

PATIENT
  Sex: Female
  Weight: 83 kg

DRUGS (9)
  1. AMBIEN CR [Concomitant]
  2. CIMZIA [Suspect]
  3. AMITRIPTYLINE [Concomitant]
  4. CIMZIA [Suspect]
     Indication: CROHN'S DISEASE
     Dosage: 400 MG 1X/MONTH SUBCUTANEOUS, SUBCUTANEOUS
     Route: 058
     Dates: start: 20100120
  5. NAMENDA [Concomitant]
  6. TOPAMAX [Concomitant]
  7. FLONASE [Concomitant]
  8. TRAMADOL [Concomitant]
  9. LEXAPRO [Concomitant]

REACTIONS (4)
  - INFECTION [None]
  - SOMNOLENCE [None]
  - ARTHRALGIA [None]
  - FATIGUE [None]
